FAERS Safety Report 8011004-4 (Version None)
Quarter: 2011Q4

REPORT INFORMATION
  Report Type: 
  Country: None (occurrence: None)
  Receive Date: 20111228
  Receipt Date: 20111221
  Transmission Date: 20120403
  Serious: Yes (Other)
  Sender: FDA-Public Use
  Company Number: KR-ROCHE-1025047

PATIENT
  Age: 42 Year
  Sex: Female

DRUGS (1)
  1. BONIVA [Suspect]
     Indication: OSTEOPOROSIS
     Route: 065
     Dates: start: 20100101

REACTIONS (3)
  - ABDOMINAL PAIN [None]
  - NASOPHARYNGITIS [None]
  - GASTROINTESTINAL DISORDER [None]
